FAERS Safety Report 4563764-2 (Version None)
Quarter: 2005Q1

REPORT INFORMATION
  Report Type: 
  Country: None (occurrence: None)
  Receive Date: 20050128
  Receipt Date: 20050117
  Transmission Date: 20050727
  Serious: Yes (Hospitalization)
  Sender: FDA-Public Use
  Company Number: DE-BRISTOL-MYERS SQUIBB COMPANY-12837134

PATIENT
  Age: 33 Year
  Sex: Female

DRUGS (4)
  1. ERBITUX [Suspect]
     Indication: COLON CANCER METASTATIC
     Route: 042
     Dates: start: 20040930
  2. FLUOROURACIL [Concomitant]
     Indication: COLON CANCER METASTATIC
     Route: 042
     Dates: start: 20040930
  3. LEUCOVORIN CALCIUM [Concomitant]
     Indication: COLON CANCER METASTATIC
     Route: 042
     Dates: start: 20040930
  4. IRINOTECAN HCL [Concomitant]
     Indication: COLON CANCER METASTATIC
     Route: 042
     Dates: start: 20040930

REACTIONS (2)
  - GENERALISED ERYTHEMA [None]
  - MUCOSAL INFLAMMATION [None]
